FAERS Safety Report 14403650 (Version 1)
Quarter: 2018Q1

REPORT INFORMATION
  Report Type: Spontaneous
  Country: US (occurrence: US)
  Receive Date: 20180117
  Receipt Date: 20180117
  Transmission Date: 20180509
  Serious: No
  Sender: FDA-Public Use
  Company Number: US-MYLANLABS-2018M1001618

PATIENT
  Sex: Male

DRUGS (1)
  1. AZELASTINE/FLUTICASONE [Suspect]
     Active Substance: AZELASTINE HYDROCHLORIDE\FLUTICASONE PROPIONATE
     Indication: PARANASAL SINUS DISCOMFORT
     Dosage: UNK, BID
     Route: 045
     Dates: start: 201712

REACTIONS (7)
  - Inflammation [None]
  - Paranasal sinus hypersecretion [None]
  - Product use in unapproved indication [Unknown]
  - Obstruction [None]
  - Drug ineffective [Unknown]
  - No adverse event [Unknown]
  - Sinus disorder [None]

NARRATIVE: CASE EVENT DATE: 201712
